FAERS Safety Report 15395794 (Version 1)
Quarter: 2018Q3

REPORT INFORMATION
  Report Type: Spontaneous
  Country: US (occurrence: US)
  Receive Date: 20180912
  Receipt Date: 20180912
  Transmission Date: 20181010
  Serious: Yes (Other)
  Sender: FDA-Public Use
  Company Number: None

PATIENT
  Age: 20 Year
  Sex: Female

DRUGS (1)
  1. MISOPROSTOL. [Suspect]
     Active Substance: MISOPROSTOL

REACTIONS (2)
  - Chills [None]
  - Pyrexia [None]

NARRATIVE: CASE EVENT DATE: 20180822
